FAERS Safety Report 21863264 (Version 2)
Quarter: 2023Q1

REPORT INFORMATION
  Report Type: Spontaneous
  Country: IT (occurrence: IT)
  Receive Date: 20230115
  Receipt Date: 20230202
  Transmission Date: 20230418
  Serious: Yes (Hospitalization, Other)
  Sender: FDA-Public Use
  Company Number: IT-BAXTER-2023BAX009768

PATIENT
  Age: 40 Year
  Sex: Female

DRUGS (13)
  1. KEYTRUDA [Suspect]
     Active Substance: PEMBROLIZUMAB
     Indication: Neoadjuvant therapy
     Dosage: 200 MILLIGRAM, Q3W, SOLUTION
     Route: 042
     Dates: start: 20220923
  2. KEYTRUDA [Suspect]
     Active Substance: PEMBROLIZUMAB
     Indication: Triple negative breast cancer
  3. CYCLOPHOSPHAMIDE [Suspect]
     Active Substance: CYCLOPHOSPHAMIDE
     Indication: Neoadjuvant therapy
     Dosage: 1002 MILLIGRAM, Q3W, SOLUTION
     Route: 042
     Dates: start: 20221214
  4. CYCLOPHOSPHAMIDE [Suspect]
     Active Substance: CYCLOPHOSPHAMIDE
     Indication: Triple negative breast cancer
  5. CARBOPLATIN [Suspect]
     Active Substance: CARBOPLATIN
     Indication: Triple negative breast cancer
     Dosage: 3 CYCLES WITH PEMBROLIZUMAB, PACLITAXEL, CARBOPLATIN
  6. CARBOPLATIN [Suspect]
     Active Substance: CARBOPLATIN
     Indication: Neoadjuvant therapy
  7. EPIRUBICIN HYDROCHLORIDE [Suspect]
     Active Substance: EPIRUBICIN HYDROCHLORIDE
     Indication: Triple negative breast cancer
     Dosage: 150.30 MILLIGRAM, Q3W
     Route: 042
     Dates: start: 20221214
  8. EPIRUBICIN HYDROCHLORIDE [Suspect]
     Active Substance: EPIRUBICIN HYDROCHLORIDE
     Indication: Neoadjuvant therapy
  9. PACLITAXEL [Suspect]
     Active Substance: PACLITAXEL
     Indication: Neoadjuvant therapy
     Dosage: 3 CYCLES WITH PEMBROLIZUMAB, PACLITAXEL, CARBOPLATIN
  10. PACLITAXEL [Suspect]
     Active Substance: PACLITAXEL
     Indication: Triple negative breast cancer
  11. PANTOPRAZOLE [Concomitant]
     Active Substance: PANTOPRAZOLE
     Indication: Prophylaxis
     Dosage: 40 MILLIGRAM, QD
     Route: 048
     Dates: start: 20220923
  12. PREDNISONE [Concomitant]
     Active Substance: PREDNISONE
     Indication: Supportive care
     Dosage: 5 MILLIGRAM, QD (EVERY OTHER DAY) (QOD)
     Route: 048
     Dates: start: 20220923
  13. FOLIC ACID [Concomitant]
     Active Substance: FOLIC ACID
     Indication: Prophylaxis
     Dosage: 5 MILLIGRAM, QD
     Route: 048
     Dates: start: 20220923

REACTIONS (4)
  - White blood cell count decreased [Recovered/Resolved]
  - Neutrophil count decreased [Recovered/Resolved]
  - Pyrexia [Recovered/Resolved]
  - Fatigue [Unknown]

NARRATIVE: CASE EVENT DATE: 20221220
